FAERS Safety Report 7351312-3 (Version None)
Quarter: 2011Q1

REPORT INFORMATION
  Report Type: 
  Country: None (occurrence: None)
  Receive Date: 20110314
  Receipt Date: 20110228
  Transmission Date: 20110831
  Serious: Yes (Other)
  Sender: FDA-Public Use
  Company Number: PHHY2010DE05264

PATIENT
  Sex: Male

DRUGS (7)
  1. DIOVAN [Suspect]
     Dosage: 120 MG-160 MG DAILY
     Route: 048
     Dates: start: 20050101
  2. CONCOR [Concomitant]
     Dosage: 2.5 MG, BID
     Route: 048
  3. ALDACTONE [Concomitant]
     Dosage: 2 DF, QW
     Route: 048
  4. EBRANTIL [Concomitant]
     Dosage: UNK
  5. INSPRA [Concomitant]
     Dosage: UNK
     Dates: start: 20110222
  6. SANDOCAL [Concomitant]
     Dosage: UNK
  7. ALDACTONE [Concomitant]
     Dosage: 4 DF, QW
     Route: 048
     Dates: start: 20110222

REACTIONS (4)
  - SENSORY DISTURBANCE [None]
  - POLYNEUROPATHY [None]
  - PLASMACYTOMA [None]
  - AMYLOIDOSIS [None]
